FAERS Safety Report 9607858 (Version 1)
Quarter: 2013Q4

REPORT INFORMATION
  Report Type: Spontaneous
  Country: US (occurrence: None)
  Receive Date: 20131008
  Receipt Date: 20131008
  Transmission Date: 20140711
  Serious: No
  Sender: FDA-Public Use
  Company Number: None

PATIENT
  Age: 29 Year
  Sex: Female
  Weight: 61.24 kg

DRUGS (1)
  1. MIDODRINE [Suspect]
     Indication: ORTHOSTATIC HYPOTENSION
     Dosage: 1.5 PILLS, FOUR TIMES DAILY, TAKEN BY MOUTH
     Route: 048
     Dates: start: 20130611, end: 20131007

REACTIONS (3)
  - Drug half-life reduced [None]
  - Product substitution issue [None]
  - Drug effect decreased [None]
